FAERS Safety Report 7530153-8 (Version None)
Quarter: 2011Q2

REPORT INFORMATION
  Report Type: 
  Country: None (occurrence: None)
  Receive Date: 20110526
  Receipt Date: 20110519
  Transmission Date: 20111010
  Serious: Yes (Hospitalization, Other)
  Sender: FDA-Public Use
  Company Number: 2010SP042224

PATIENT
  Age: 30 Year
  Sex: Female
  Weight: 68.0396 kg

DRUGS (1)
  1. NUVARING [Suspect]
     Indication: CONTRACEPTION
     Dates: start: 20080101, end: 20080801

REACTIONS (39)
  - LUPUS-LIKE SYNDROME [None]
  - DEPRESSION [None]
  - HEART RATE IRREGULAR [None]
  - ABDOMINAL PAIN [None]
  - CALCULUS URETERIC [None]
  - PAIN [None]
  - GASTROINTESTINAL DISORDER [None]
  - PHLEBITIS [None]
  - PRURITUS GENERALISED [None]
  - BACK PAIN [None]
  - OVARIAN HAEMORRHAGE [None]
  - IMPATIENCE [None]
  - GASTRITIS [None]
  - INGROWING NAIL [None]
  - OVARIAN INFECTION [None]
  - CHOLECYSTECTOMY [None]
  - ANXIETY [None]
  - MIGRAINE [None]
  - RENAL CYST [None]
  - CERVICITIS [None]
  - HEADACHE [None]
  - ANGINA PECTORIS [None]
  - HYDRONEPHROSIS [None]
  - OVARIAN CYST [None]
  - ARTHRALGIA [None]
  - MEMORY IMPAIRMENT [None]
  - PELVIC VENOUS THROMBOSIS [None]
  - HEART RATE ABNORMAL [None]
  - STRESS [None]
  - CHEST PAIN [None]
  - INSOMNIA [None]
  - CHOLELITHIASIS [None]
  - CHOLECYSTITIS [None]
  - HIATUS HERNIA [None]
  - BRADYCARDIA [None]
  - SKIN PAPILLOMA [None]
  - COLITIS [None]
  - RENAL DISORDER [None]
  - FIBROMYALGIA [None]
